FAERS Safety Report 24449501 (Version 3)
Quarter: 2024Q4

REPORT INFORMATION
  Report Type: Spontaneous
  Country: NZ (occurrence: NZ)
  Receive Date: 20241017
  Receipt Date: 20241101
  Transmission Date: 20250115
  Serious: Yes (Death, Other)
  Sender: MYLAN
  Company Number: NZ-MYLANLABS-2024M1093790

PATIENT
  Sex: Male

DRUGS (8)
  1. CLOZARIL [Suspect]
     Active Substance: CLOZAPINE
     Indication: Schizophrenia
     Dosage: UNK
     Route: 048
     Dates: start: 20240916, end: 20241009
  2. CLOZARIL [Suspect]
     Active Substance: CLOZAPINE
     Indication: Dementia with Lewy bodies
     Dosage: 37.5 MILLIGRAM, PM (AT NIGHT)
     Route: 048
     Dates: start: 20240916, end: 20241009
  3. DONEPEZIL [Concomitant]
     Active Substance: DONEPEZIL
     Dosage: UNK
     Route: 065
  4. LORAZEPAM [Concomitant]
     Active Substance: LORAZEPAM
     Dosage: UNK
     Route: 065
  5. HALOPERIDOL [Concomitant]
     Active Substance: HALOPERIDOL
     Indication: Dementia with Lewy bodies
     Dosage: 1 MILLIGRAM, TID (TDS)
     Route: 058
     Dates: start: 20240827, end: 20241011
  6. HALOPERIDOL [Concomitant]
     Active Substance: HALOPERIDOL
     Indication: Agitation
  7. MESALAMINE [Concomitant]
     Active Substance: MESALAMINE
     Indication: Inflammatory bowel disease
     Dosage: 1000 MILLIGRAM, BID (TWICE DAILY)
     Route: 048
     Dates: start: 20240729, end: 20241010
  8. PREDNISONE [Concomitant]
     Active Substance: PREDNISONE
     Indication: Crohn^s disease
     Dosage: UNK (REG MED FOR CROHNS - DOSE VARIED 1-5 MG IN WEEKS BEFORE DEATH)
     Route: 065

REACTIONS (3)
  - Dementia [Fatal]
  - Delirium [Fatal]
  - Off label use [Unknown]
